FAERS Safety Report 7473829-3 (Version None)
Quarter: 2011Q2

REPORT INFORMATION
  Report Type: 
  Country: None (occurrence: None)
  Receive Date: 20110511
  Receipt Date: 20110505
  Transmission Date: 20111010
  Serious: Yes (Hospitalization)
  Sender: FDA-Public Use
  Company Number: IT-B.I. PHARMACEUTICALS,INC./RIDGEFIELD-2011-DE-02459BY

PATIENT
  Sex: Female

DRUGS (4)
  1. REPORTED IN NARRATIVE [Concomitant]
  2. TELMISARTAN AND HYDROCHLOROTHIAZIDE [Suspect]
     Dosage: 210 MG
     Route: 048
     Dates: start: 20110218, end: 20110225
  3. TELMISARTAN AND HYDROCHLOROTHIAZIDE [Suspect]
     Dosage: 92.5 MG
     Route: 048
     Dates: start: 20110226, end: 20110317
  4. ZANEDIP [Concomitant]

REACTIONS (2)
  - JAUNDICE CHOLESTATIC [None]
  - NAUSEA [None]
